FAERS Safety Report 12364824 (Version 1)
Quarter: 2016Q2

REPORT INFORMATION
  Report Type: Spontaneous
  Country: US (occurrence: None)
  Receive Date: 20160512
  Receipt Date: 20160512
  Transmission Date: 20160815
  Serious: No
  Sender: FDA-Public Use
  Company Number: None

PATIENT
  Age: 28 Year
  Sex: Female
  Weight: 83.46 kg

DRUGS (3)
  1. PIPERACILLIN/TAZOBACTAM [Concomitant]
     Active Substance: PIPERACILLIN SODIUM\TAZOBACTAM SODIUM
  2. VANCOMYCIN, 10 GM EITHER HOSPITA OR APP WERE USED [Suspect]
     Active Substance: VANCOMYCIN
     Indication: ABDOMINAL PAIN
     Route: 041
     Dates: start: 20160509, end: 20160511
  3. VANCOMYCIN, 10 GM EITHER HOSPITA OR APP WERE USED [Suspect]
     Active Substance: VANCOMYCIN
     Indication: PROCEDURAL PAIN
     Route: 041
     Dates: start: 20160509, end: 20160511

REACTIONS (2)
  - Product lot number issue [None]
  - Blood creatinine increased [None]

NARRATIVE: CASE EVENT DATE: 20160511
